FAERS Safety Report 5940774-1 (Version None)
Quarter: 2008Q4

REPORT INFORMATION
  Report Type: 
  Country: None (occurrence: None)
  Receive Date: 20081030
  Receipt Date: 20081021
  Transmission Date: 20090506
  Serious: Yes (Hospitalization)
  Sender: FDA-Public Use
  Company Number: 100#03#2008-05404

PATIENT
  Age: 32 Year
  Sex: Male

DRUGS (2)
  1. SINERSUL FORTE (SULFAMETHOXAZOLE, TRIMETHOPRIM) [Suspect]
     Indication: URINARY TRACT INFECTION
     Dosage: 1 DF TWICE DAILY ORAL
     Route: 048
     Dates: start: 20080415
  2. INDOMETHACIN [Suspect]
     Indication: URINARY TRACT INFECTION
     Dosage: 1 DF TWICE DAILY ORAL
     Route: 048
     Dates: start: 20080415

REACTIONS (2)
  - ERYTHEMA [None]
  - RASH [None]
